FAERS Safety Report 4312452-6 (Version None)
Quarter: 2004Q1

REPORT INFORMATION
  Report Type: 
  Country: None (occurrence: None)
  Receive Date: 20040305
  Receipt Date: 20040224
  Transmission Date: 20041129
  Serious: Yes (Death, Hospitalization)
  Sender: FDA-Public Use
  Company Number: US-ROCHE-359993

PATIENT
  Age: 42 Year
  Sex: Female

DRUGS (4)
  1. COPEGUS [Suspect]
     Route: 048
     Dates: start: 20030315, end: 20031211
  2. RAPAMUNE [Suspect]
     Indication: DRUG USE FOR UNKNOWN INDICATION
     Route: 065
     Dates: start: 20030315
  3. BACTRIM [Concomitant]
     Indication: DRUG USE FOR UNKNOWN INDICATION
     Dosage: PRECAUTIONARY DOSE INDICATED BUT NOR PROVIDED.
     Route: 065
     Dates: start: 20030315
  4. PROCRIT [Concomitant]
     Indication: DRUG USE FOR UNKNOWN INDICATION
     Dosage: TAKEN WEEKLY. FORMULATION: INJECTIONS.
     Route: 065
     Dates: start: 20030315

REACTIONS (9)
  - ASCITES [None]
  - ASTHENIA [None]
  - DYSSTASIA [None]
  - HYPOTENSION [None]
  - LIVER TRANSPLANT [None]
  - NAUSEA [None]
  - PANCREATITIS [None]
  - SEPSIS [None]
  - VOMITING [None]
